FAERS Safety Report 6683005-X (Version None)
Quarter: 2010Q2

REPORT INFORMATION
  Report Type: 
  Country: None (occurrence: None)
  Receive Date: 20100415
  Receipt Date: 20100406
  Transmission Date: 20101027
  Serious: Yes (Other)
  Sender: FDA-Public Use
  Company Number: GB-SANOFI-AVENTIS-2010SA019891

PATIENT
  Sex: Female
  Weight: 70 kg

DRUGS (5)
  1. HYDROXYCHLOROQUINE SULFATE [Suspect]
     Indication: DRUG USE FOR UNKNOWN INDICATION
     Dates: start: 20100108, end: 20100301
  2. BENDROFLUMETHIAZIDE [Concomitant]
     Indication: HYPERTENSION
  3. CALCIUM/VITAMIN D [Concomitant]
  4. DOXAZOSIN [Concomitant]
     Indication: HYPERTENSION
  5. PREDNISOLONE [Concomitant]

REACTIONS (4)
  - MALAISE [None]
  - MOUTH ULCERATION [None]
  - RASH ERYTHEMATOUS [None]
  - VISION BLURRED [None]
